FAERS Safety Report 24957020 (Version 1)
Quarter: 2025Q1

REPORT INFORMATION
  Report Type: Spontaneous
  Country: IN (occurrence: IN)
  Receive Date: 20250211
  Receipt Date: 20250211
  Transmission Date: 20250409
  Serious: Yes (Other)
  Sender: PFIZER
  Company Number: IN-PFIZER INC-PV202500014986

PATIENT
  Age: 20 Year
  Sex: Male

DRUGS (1)
  1. VORICONAZOLE [Suspect]
     Active Substance: VORICONAZOLE
     Indication: Bronchopulmonary aspergillosis
     Dosage: 200 MG, 2X/DAY
     Route: 042

REACTIONS (3)
  - Psychotic disorder [Recovered/Resolved]
  - Persecutory delusion [Recovered/Resolved]
  - Hallucinations, mixed [Recovered/Resolved]
